FAERS Safety Report 5314840-8 (Version None)
Quarter: 2007Q2

REPORT INFORMATION
  Report Type: 
  Country: None (occurrence: None)
  Receive Date: 20070502
  Receipt Date: 20070426
  Transmission Date: 20071010
  Serious: Yes (Life-Threatening)
  Sender: FDA-Public Use
  Company Number: IT-ELI_LILLY_AND_COMPANY-IT200704006370

PATIENT
  Age: 61 Year
  Sex: Male

DRUGS (5)
  1. GEMZAR [Suspect]
     Indication: PANCREATIC CARCINOMA METASTATIC
     Dosage: 1000 MG/M2, OTHER
     Route: 042
     Dates: start: 20070222, end: 20070405
  2. RANIDIL [Concomitant]
  3. DEXAMETHASONE 0.5MG TAB [Concomitant]
  4. ZOFRAN [Concomitant]
  5. GLIBOMET [Concomitant]
     Dosage: 1 D/F, 3/D
     Route: 048

REACTIONS (3)
  - ALVEOLITIS [None]
  - DYSPNOEA [None]
  - PYREXIA [None]
